FAERS Safety Report 8199915 (Version 3)
Quarter: 2013Q1

REPORT INFORMATION
  Report Type: Spontaneous
  Country: US (occurrence: US)
  Receive Date: 20111018
  Receipt Date: 20130128
  Transmission Date: 20140127
  Serious: Yes (Life-Threatening, Hospitalization, Other)
  Sender: FDA-Public Use
  Company Number: 2011P1008923

PATIENT
  Age: 73 Year
  Sex: Female

DRUGS (9)
  1. TRIAMCINOLONE ACETONIDE [Suspect]
     Route: 061
     Dates: start: 20110208, end: 20110210
  2. CARVEDILOL [Concomitant]
     Route: 048
  3. HUMIRA (ADALIMUMAB) [Concomitant]
     Route: 048
  4. PREDNISONE [Concomitant]
     Route: 048
  5. ASPIRIN [Concomitant]
     Route: 048
  6. SPIRONOLACTONE [Concomitant]
  7. PRAVASTATIN [Concomitant]
  8. LISINOPRIL [Concomitant]
  9. FEMARA [Concomitant]

REACTIONS (12)
  - Drug ineffective [Not Recovered/Not Resolved]
  - Local swelling [Recovered/Resolved]
  - Skin discolouration [Not Recovered/Not Resolved]
  - Thrombosis [Not Recovered/Not Resolved]
  - Pulmonary embolism [Not Recovered/Not Resolved]
  - Bronchitis [Recovered/Resolved]
  - Intra-abdominal haemorrhage [Recovered/Resolved]
  - Contusion [Unknown]
  - Abdominal pain lower [Unknown]
  - Cardiomegaly [Unknown]
  - Atelectasis [Unknown]
  - Lung infiltration [Unknown]
